FAERS Safety Report 8906031 (Version 1)
Quarter: 2012Q4

REPORT INFORMATION
  Report Type: 
  Country: US (occurrence: US)
  Receive Date: 20121111
  Receipt Date: 20121111
  Transmission Date: 20130627
  Serious: No
  Sender: FDA-Public Use
  Company Number: US-009507513-2012SP034769

PATIENT
  Age: 57 Year
  Sex: Male
  Weight: 70.3 kg

DRUGS (4)
  1. VICTRELIS [Suspect]
     Dosage: 800 mg, tid
     Route: 048
  2. PEGASYS [Suspect]
     Dosage: 180 MCG/0.5ML, every week
     Route: 058
  3. RIBAPAK [Suspect]
     Dosage: 1000, QD
     Route: 048
  4. LISINOPRIL [Concomitant]
     Dosage: 2.5 mg, UNK
     Route: 048

REACTIONS (13)
  - Influenza [Unknown]
  - Cough [Unknown]
  - Influenza like illness [Unknown]
  - Pyrexia [Unknown]
  - Headache [Unknown]
  - Pain in extremity [Unknown]
  - Pain in extremity [Unknown]
  - Dysgeusia [Unknown]
  - Fatigue [Unknown]
  - Asthenia [Unknown]
  - Dry mouth [Unknown]
  - Fatigue [Unknown]
  - Fatigue [Unknown]
